FAERS Safety Report 8926441 (Version 1)
Quarter: 2012Q4

REPORT INFORMATION
  Report Type: 
  Country: PL (occurrence: PL)
  Receive Date: 20121127
  Receipt Date: 20121127
  Transmission Date: 20130627
  Serious: Yes (Death)
  Sender: FDA-Public Use
  Company Number: PL-TEVA-372457USA

PATIENT
  Age: 65 Year
  Sex: Male

DRUGS (4)
  1. TREANDA [Suspect]
     Dosage: UID/QD
     Route: 042
     Dates: start: 20121112
  2. AMLOPIN [Concomitant]
     Route: 048
  3. BISOCARD [Concomitant]
     Route: 048
  4. CAPTOPRIL [Concomitant]
     Route: 048

REACTIONS (1)
  - Cardiac arrest [Fatal]
